FAERS Safety Report 24199136 (Version 1)
Quarter: 2024Q3

REPORT INFORMATION
  Report Type: Spontaneous
  Country: ES (occurrence: ES)
  Receive Date: 20240812
  Receipt Date: 20240812
  Transmission Date: 20241017
  Serious: Yes (Other)
  Sender: GRIFOLS
  Company Number: ES-IGSA-BIG0030127

PATIENT
  Age: 9 Year
  Sex: Female
  Weight: 31.4 kg

DRUGS (3)
  1. XEMBIFY [Suspect]
     Active Substance: HUMAN IMMUNOGLOBULIN G
     Indication: Activated PI3 kinase delta syndrome
     Dosage: 8 GRAM, Q.2WK.
     Route: 058
     Dates: start: 20240422, end: 20240724
  2. SULFAMETHOXAZOLE\TRIMETHOPRIM [Concomitant]
     Active Substance: SULFAMETHOXAZOLE\TRIMETHOPRIM
     Indication: Prophylaxis
     Dosage: 200/40 MILLIGRAM, BID
     Route: 048
  3. LENIOLISIB [Concomitant]
     Active Substance: LENIOLISIB
     Indication: Immunomodulatory therapy
     Dosage: 30 MILLIGRAM, BID
     Route: 048
     Dates: start: 20240731

REACTIONS (1)
  - Skin necrosis [Not Recovered/Not Resolved]

NARRATIVE: CASE EVENT DATE: 20240710
